FAERS Safety Report 10149319 (Version 2)
Quarter: 2014Q2

REPORT INFORMATION
  Report Type: Spontaneous
  Country: GB (occurrence: GB)
  Receive Date: 20140502
  Receipt Date: 20140505
  Transmission Date: 20141212
  Serious: Yes (Other)
  Sender: FDA-Public Use
  Company Number: GB-ROCHE-1389124

PATIENT
  Age: 28 Year
  Sex: Male

DRUGS (4)
  1. INTERFERON ALFA-2A [Suspect]
     Indication: HEPATITIS C
     Route: 065
     Dates: start: 20140331
  2. RIBAVIRIN [Suspect]
     Indication: HEPATITIS C
     Route: 048
     Dates: start: 20140331, end: 20140411
  3. INTERFERON GAMMA-1B [Suspect]
     Indication: HEPATITIS C
     Route: 065
     Dates: start: 20140331, end: 20140407
  4. ZAPONEX [Suspect]
     Indication: SCHIZOPHRENIA
     Route: 048
     Dates: start: 20120207

REACTIONS (2)
  - Hepatitis C [Not Recovered/Not Resolved]
  - Neutrophil count decreased [Recovered/Resolved]
